FAERS Safety Report 6318953-3 (Version None)
Quarter: 2009Q3

REPORT INFORMATION
  Report Type: 
  Country: None (occurrence: None)
  Receive Date: 20090821
  Receipt Date: 20090206
  Transmission Date: 20100115
  Serious: No
  Sender: FDA-Public Use
  Company Number: US-ABBOTT-09P-163-0502455-00

PATIENT
  Sex: Female

DRUGS (15)
  1. NIASPAN [Suspect]
     Indication: BLOOD CHOLESTEROL
     Dosage: AT BEDTIME
     Route: 048
     Dates: start: 20090205, end: 20090216
  2. CLONAZEPAM [Concomitant]
     Indication: INSOMNIA
  3. PHENERGAN [Concomitant]
     Indication: NAUSEA
  4. LOVAZA [Concomitant]
     Indication: BLOOD CHOLESTEROL
  5. WELCHOL [Concomitant]
     Indication: BLOOD CHOLESTEROL
     Dosage: 4000MG IN AM AND 4000MG IN PM
     Route: 048
  6. DARVOCET [Concomitant]
     Indication: PAIN IN EXTREMITY
  7. DARVOCET [Concomitant]
     Indication: ARTHRALGIA
  8. SINGULAIR [Concomitant]
     Indication: DRUG USE FOR UNKNOWN INDICATION
  9. OMEPRAZOLE [Concomitant]
     Indication: GASTRIC DISORDER
  10. TOPROL-XL [Concomitant]
     Indication: DRUG USE FOR UNKNOWN INDICATION
  11. DIOVAN [Concomitant]
     Indication: DRUG USE FOR UNKNOWN INDICATION
  12. GLUCOPHAGE [Concomitant]
     Indication: TYPE 2 DIABETES MELLITUS
  13. STOOL SOFTENER [Concomitant]
     Indication: DRUG USE FOR UNKNOWN INDICATION
  14. UNKNOWN FIBER LAXATIVE [Concomitant]
     Indication: DRUG USE FOR UNKNOWN INDICATION
  15. IBUPROFEN [Concomitant]
     Indication: DRUG USE FOR UNKNOWN INDICATION
     Route: 048

REACTIONS (11)
  - ABDOMINAL PAIN UPPER [None]
  - ANXIETY [None]
  - BURNING SENSATION [None]
  - CHEST DISCOMFORT [None]
  - FEELING HOT [None]
  - GENERALISED ERYTHEMA [None]
  - HEADACHE [None]
  - NAUSEA [None]
  - PARAESTHESIA [None]
  - PRURITUS [None]
  - PRURITUS GENERALISED [None]
